FAERS Safety Report 8148645 (Version 3)
Quarter: 2013Q2

REPORT INFORMATION
  Report Type: Spontaneous
  Country: US (occurrence: US)
  Receive Date: 20110922
  Receipt Date: 20130409
  Transmission Date: 20140414
  Serious: Yes (Hospitalization, Other)
  Sender: FDA-Public Use
  Company Number: US-ASTRAZENECA-2011SE12498

PATIENT
  Age: 27 Year
  Sex: Female
  Weight: 57 kg

DRUGS (16)
  1. SEROQUEL [Suspect]
     Route: 048
     Dates: start: 20010402
  2. ESKALITH CR [Concomitant]
     Dates: start: 20000627
  3. NEURONTIN [Concomitant]
     Dates: start: 20000627
  4. CLONAZEPAM [Concomitant]
     Dates: start: 20000627
  5. IMITREX [Concomitant]
     Dates: start: 20000711
  6. PROZAC [Concomitant]
     Dates: start: 20001025
  7. WELLBUTRIN SR [Concomitant]
     Dates: start: 20010113
  8. CARBAMAZEPINE [Concomitant]
     Dates: start: 20010113
  9. AMBIEN [Concomitant]
     Dates: start: 20010201
  10. ZOFRAN [Concomitant]
     Dosage: AS NEEDED
     Dates: start: 200509
  11. ZOFRAN [Concomitant]
     Dates: start: 200510
  12. REGLAN [Concomitant]
     Dates: start: 200510
  13. ZANTAC [Concomitant]
     Dates: start: 200510
  14. PRENATAL VITAMINS [Concomitant]
     Dates: start: 200509
  15. PROTONIX [Concomitant]
     Dates: start: 200509
  16. ANTI-EMETICS [Concomitant]
     Dates: start: 200509

REACTIONS (5)
  - Pancreatitis [Unknown]
  - Diabetic coma [Unknown]
  - Pancreatitis acute [Unknown]
  - Exposure during pregnancy [Unknown]
  - Type 2 diabetes mellitus [Unknown]
